FAERS Safety Report 8624828-7 (Version None)
Quarter: 2012Q3

REPORT INFORMATION
  Report Type: 
  Country: None (occurrence: None)
  Receive Date: 20120827
  Receipt Date: 20120820
  Transmission Date: 20120928
  Serious: Yes (Hospitalization)
  Sender: FDA-Public Use
  Company Number: FR-MERCK-1208FRA008334

PATIENT

DRUGS (2)
  1. DESLORATADINE [Suspect]
     Indication: EYELID OEDEMA
     Dosage: UNK
     Route: 048
     Dates: start: 20120726
  2. ZANTAC [Suspect]
     Indication: PRODUCT USED FOR UNKNOWN INDICATION
     Dosage: UNK
     Route: 048
     Dates: start: 20120726

REACTIONS (1)
  - NEUTROPENIA [None]
